FAERS Safety Report 5063492-3 (Version None)
Quarter: 2006Q3

REPORT INFORMATION
  Report Type: 
  Country: None (occurrence: None)
  Receive Date: 20060727
  Receipt Date: 20060718
  Transmission Date: 20061208
  Serious: Yes (Death, Life-Threatening, Hospitalization, Disabling, Other)
  Sender: FDA-Public Use
  Company Number: PT-BRISTOL-MYERS SQUIBB COMPANY-13452362

PATIENT
  Age: 74 Year
  Sex: Male

DRUGS (5)
  1. ERBITUX [Suspect]
     Indication: COLORECTAL CANCER STAGE IV
     Route: 042
     Dates: start: 20060310, end: 20060413
  2. IRINOTECAN HCL [Suspect]
     Indication: COLORECTAL CANCER STAGE IV
  3. OMEPRAZOLE [Concomitant]
     Indication: DRUG USE FOR UNKNOWN INDICATION
  4. LANSOPRAZOLE [Concomitant]
     Indication: DRUG USE FOR UNKNOWN INDICATION
     Dates: start: 20060221, end: 20060413
  5. BUPRENORPHINE HCL [Concomitant]
     Indication: DRUG USE FOR UNKNOWN INDICATION
     Dosage: 35 MICROGRAM/HOUR
     Dates: start: 20060428, end: 20060429

REACTIONS (1)
  - INTESTINAL OBSTRUCTION [None]
